FAERS Safety Report 15409144 (Version 1)
Quarter: 2018Q4

REPORT INFORMATION
  Report Type: Spontaneous
  Country: DE (occurrence: DE)
  Receive Date: 20180920
  Receipt Date: 20180920
  Transmission Date: 20190204
  Serious: Yes (Other)
  Sender: FDA-Public Use
  Company Number: DE-MYLANLABS-2018M1069125

PATIENT
  Age: 19 Year
  Sex: Male

DRUGS (9)
  1. CLOFARABINE. [Suspect]
     Active Substance: CLOFARABINE
     Indication: CYTOREDUCTIVE SURGERY
     Dosage: UNK (1 HOUR INFUSION)
     Route: 042
  2. LEVOFLOXACIN. [Concomitant]
     Active Substance: LEVOFLOXACIN
     Indication: ANTIBIOTIC PROPHYLAXIS
     Dosage: UNK (WITH THE BEGINNING OF RIC UNTIL DAY +35)
     Route: 065
  3. METRONIDAZOLE. [Concomitant]
     Active Substance: METRONIDAZOLE
     Indication: ANTIBIOTIC PROPHYLAXIS
     Dosage: UNK (WITH THE BEGINNING OF RIC UNTIL DAY +35)
     Route: 065
  4. CYCLOSPORINE. [Concomitant]
     Active Substance: CYCLOSPORINE
     Indication: PROPHYLAXIS AGAINST GRAFT VERSUS HOST DISEASE
     Dosage: UNK (FROM  DAY -1 (TARGET TROUGH LEVEL: 120-150 NG/ML), TAPERED FROM DAYS +70 TO +90)
     Route: 065
  5. ENDOXAN LYOPHILISAT /00021102/ [Suspect]
     Active Substance: CYCLOPHOSPHAMIDE
     Indication: BONE MARROW CONDITIONING REGIMEN
     Dosage: UNK
     Route: 065
  6. MYCOPHENOLATE MOFETIL. [Concomitant]
     Active Substance: MYCOPHENOLATE MOFETIL
     Indication: PROPHYLAXIS AGAINST GRAFT VERSUS HOST DISEASE
     Dosage: 30 MG/KG, QD (STARTING AT THE DAY OF  TRANSPLANTATION, STOPPED AT DAY +50)
     Route: 065
  7. FLUCONAZOLE. [Concomitant]
     Active Substance: FLUCONAZOLE
     Indication: ANTIFUNGAL PROPHYLAXIS
     Dosage: UNK (UNTIL DAY +80)
     Route: 065
  8. ACICLOVIR [Concomitant]
     Active Substance: ACYCLOVIR
     Indication: ANTIVIRAL PROPHYLAXIS
     Dosage: UNK (FROM DAY+1 UNTIL RECOVERY OF NEUTROPHILS)
     Route: 065
  9. CYTARABINE. [Suspect]
     Active Substance: CYTARABINE
     Indication: CYTOREDUCTIVE SURGERY
     Dosage: UNK (2 HOUR INFUSION)
     Route: 042

REACTIONS (8)
  - Nephropathy toxic [Unknown]
  - Alopecia [Unknown]
  - Mucosal inflammation [Unknown]
  - Nausea [Unknown]
  - Cystitis haemorrhagic [Unknown]
  - Endocrine disorder [Unknown]
  - Nervous system disorder [Unknown]
  - Oedema [Unknown]
